FAERS Safety Report 9514074 (Version 1)
Quarter: 2013Q3

REPORT INFORMATION
  Report Type: Spontaneous
  Country: BE (occurrence: BE)
  Receive Date: 20130910
  Receipt Date: 20130910
  Transmission Date: 20140515
  Serious: Yes (Life-Threatening, Hospitalization)
  Sender: FDA-Public Use
  Company Number: BE-PFIZER INC-2013255627

PATIENT
  Age: 26 Year
  Sex: Female

DRUGS (8)
  1. BILASTINE [Suspect]
     Dosage: 20 MG, 1X/DAY
     Route: 048
     Dates: start: 20130708
  2. MEDROL [Suspect]
     Dosage: 32 MG, UNK
     Route: 048
     Dates: start: 20130709
  3. MEDROL [Suspect]
     Dosage: 128 MG, UNK
     Dates: start: 20130710
  4. MEDROL [Suspect]
     Dosage: 64 MG,UNK DURING 4 DAYS
  5. MEDROL [Suspect]
     Dosage: 32 MG, UNK DURING 4 DAYS
  6. MEDROL [Suspect]
     Dosage: 16 MG, UNK DURING 1 DAY
  7. METOCLOPRAMIDE HCL [Suspect]
     Dosage: 20 MG, 3X/DAY BEFORE MEALS
     Route: 048
     Dates: start: 20130716
  8. OMEPRAZOL [Suspect]
     Indication: ABDOMINAL DISCOMFORT
     Dosage: 40 MG, 1X/DAY
     Route: 048
     Dates: start: 20130716

REACTIONS (1)
  - Hepatic failure [Unknown]
